FAERS Safety Report 7935786-2 (Version None)
Quarter: 2011Q4

REPORT INFORMATION
  Report Type: 
  Country: None (occurrence: None)
  Receive Date: 20111123
  Receipt Date: 20111110
  Transmission Date: 20120403
  Serious: Yes (Hospitalization, Other)
  Sender: FDA-Public Use
  Company Number: US-ELI_LILLY_AND_COMPANY-US201107005437

PATIENT
  Sex: Female

DRUGS (3)
  1. FORTEO [Suspect]
     Indication: OSTEOPOROSIS
     Dosage: UNK, UNKNOWN
  2. HUMIRA [Concomitant]
  3. PREDNISONE TAB [Concomitant]

REACTIONS (7)
  - ARTHRALGIA [None]
  - SKIN NECROSIS [None]
  - DRUG DOSE OMISSION [None]
  - IMMUNE SYSTEM DISORDER [None]
  - INTERVERTEBRAL DISC PROTRUSION [None]
  - INFLAMMATION [None]
  - STAPHYLOCOCCAL INFECTION [None]
